FAERS Safety Report 14802434 (Version 1)
Quarter: 2018Q2

REPORT INFORMATION
  Report Type: Spontaneous
  Country: US (occurrence: US)
  Receive Date: 20180424
  Receipt Date: 20180424
  Transmission Date: 20180711
  Serious: Yes (Life-Threatening, Hospitalization, Other)
  Sender: FDA-Public Use
  Company Number: US-DSJP-DSU-2018-115354

PATIENT

DRUGS (1)
  1. MORPHINE SULFATE. [Suspect]
     Active Substance: MORPHINE SULFATE
     Indication: PAIN
     Dosage: UNK
     Route: 065

REACTIONS (8)
  - Respiratory failure [Unknown]
  - Hypoxia [Unknown]
  - Acute kidney injury [Unknown]
  - Posterior reversible encephalopathy syndrome [Unknown]
  - Acute respiratory distress syndrome [Unknown]
  - Somnolence [Unknown]
  - Overdose [Unknown]
  - Acute chest syndrome [Unknown]
